FAERS Safety Report 7269882-2 (Version None)
Quarter: 2011Q1

REPORT INFORMATION
  Report Type: 
  Country: None (occurrence: None)
  Receive Date: 20110202
  Receipt Date: 20110125
  Transmission Date: 20110831
  Serious: Yes (Hospitalization, Other)
  Sender: FDA-Public Use
  Company Number: JP-ASTELLAS-2010JP007587

PATIENT
  Sex: Male
  Weight: 48 kg

DRUGS (19)
  1. PROGRAF [Suspect]
     Dosage: 4 MG, BID
     Route: 048
     Dates: start: 20100518, end: 20100527
  2. PREDONINE [Concomitant]
     Dosage: 16.67 MG, TID
     Route: 042
     Dates: start: 20100415, end: 20100428
  3. PROGRAF [Suspect]
     Indication: COLITIS ULCERATIVE
     Dosage: 5 MG, BID
     Route: 048
     Dates: start: 20100410, end: 20100412
  4. PROGRAF [Suspect]
     Dosage: 1.5 MG, BID
     Route: 048
     Dates: start: 20100407, end: 20100409
  5. PROGRAF [Suspect]
     Dosage: 1.5 MG, BID
     Route: 048
     Dates: start: 20100428, end: 20100507
  6. PREDONINE [Concomitant]
     Dosage: 20 MG, BID
     Route: 042
     Dates: start: 20100429, end: 20100503
  7. PROGRAF [Suspect]
     Dosage: 5 MG, BID
     Route: 048
     Dates: start: 20100528
  8. LAC B [Concomitant]
     Indication: COLITIS ULCERATIVE
     Dosage: 1 G, TID
     Route: 048
     Dates: start: 20070221
  9. PREDONINE [Concomitant]
     Dosage: 7.5 MG, QID
     Route: 048
     Dates: start: 20100504, end: 20100517
  10. PROGRAF [Suspect]
     Dosage: 2 MG, BID
     Route: 048
     Dates: start: 20100508, end: 20100517
  11. LENDORMIN [Concomitant]
     Indication: INSOMNIA
     Dosage: 0.25 MG, UID/QD
     Route: 048
     Dates: start: 20100412
  12. PREDONINE [Concomitant]
     Dosage: 5 MG, TID
     Route: 048
     Dates: start: 20100525, end: 20100604
  13. PROGRAF [Suspect]
     Dosage: 3 MG, BID
     Route: 048
     Dates: start: 20100414, end: 20100427
  14. PREDONINE [Concomitant]
     Indication: COLITIS ULCERATIVE
     Dosage: 20 MG, TID
     Route: 042
     Dates: start: 20100331, end: 20100414
  15. PREDONINE [Concomitant]
     Dosage: 6.67 MG, TID
     Route: 048
     Dates: start: 20100518, end: 20100524
  16. ASACOL [Concomitant]
     Indication: COLITIS ULCERATIVE
     Dosage: 1200 MG, TID
     Route: 048
     Dates: start: 20100210
  17. GASTER [Concomitant]
     Indication: REFLUX OESOPHAGITIS
     Dosage: 20 MG, BID
     Route: 048
     Dates: start: 20070221
  18. FOSAMAX [Concomitant]
     Indication: OSTEOPOROSIS
     Dosage: 35 MG, WEEKLY
     Route: 048
     Dates: start: 20090910
  19. PREDONINE [Concomitant]
     Dosage: 5 MG, BID
     Route: 048
     Dates: start: 20100605

REACTIONS (7)
  - MALAISE [None]
  - TREMOR [None]
  - MYALGIA [None]
  - IRRITABILITY [None]
  - ABDOMINAL PAIN [None]
  - INSOMNIA [None]
  - DEPRESSED LEVEL OF CONSCIOUSNESS [None]
